FAERS Safety Report 17881381 (Version 1)
Quarter: 2020Q2

REPORT INFORMATION
  Report Type: Spontaneous
  Country: US (occurrence: US)
  Receive Date: 20200610
  Receipt Date: 20200610
  Transmission Date: 20200714
  Serious: Yes (Life-Threatening, Other)
  Sender: FDA-Public Use
  Company Number: US-INDIVIOR EUROPE LIMITED-INDV-125159-2020

PATIENT
  Age: 48 Year
  Sex: Male

DRUGS (4)
  1. SUBUTEX [Suspect]
     Active Substance: BUPRENORPHINE HYDROCHLORIDE
     Indication: PAIN
     Dosage: UNK
     Route: 065
  2. SUBUTEX [Suspect]
     Active Substance: BUPRENORPHINE HYDROCHLORIDE
     Indication: DRUG DEPENDENCE
     Dosage: 8 MILLIGRAM, QD (FOUR 8 MG TABLETS PER DAY)
     Route: 065
     Dates: end: 201906
  3. SUBLOCADE [Suspect]
     Active Substance: BUPRENORPHINE
     Indication: PAIN
     Dosage: 300 MILLIGRAM (SPLIT INTO TWO)
     Route: 058
     Dates: start: 202005
  4. SUBLOCADE [Suspect]
     Active Substance: BUPRENORPHINE
     Indication: DRUG DEPENDENCE
     Dosage: 300 MILLIGRAM, QMO (1ST AND 2ND INJECTIONS)
     Route: 058
     Dates: start: 202003

REACTIONS (6)
  - Oesophageal cancer metastatic [Recovered/Resolved]
  - Prescribed overdose [Recovered/Resolved]
  - Drug withdrawal syndrome [Not Recovered/Not Resolved]
  - Diarrhoea [Not Recovered/Not Resolved]
  - Weight decreased [Unknown]
  - Wrong technique in product usage process [Recovered/Resolved]

NARRATIVE: CASE EVENT DATE: 202005
